FAERS Safety Report 6283030-7 (Version None)
Quarter: 2009Q3

REPORT INFORMATION
  Report Type: 
  Country: None (occurrence: None)
  Receive Date: 20090724
  Receipt Date: 20090714
  Transmission Date: 20100115
  Serious: Yes (Hospitalization)
  Sender: FDA-Public Use
  Company Number: DE-ELI_LILLY_AND_COMPANY-DE200907002894

PATIENT
  Sex: Male
  Weight: 85 kg

DRUGS (2)
  1. ALIMTA [Suspect]
     Indication: PLEURAL MESOTHELIOMA
     Dosage: 500 MG/M2, OTHER
     Route: 042
     Dates: start: 20090505
  2. CISPLATIN [Concomitant]
     Indication: PLEURAL MESOTHELIOMA
     Dosage: 75 MG/M2, UNK
     Dates: start: 20090505

REACTIONS (2)
  - EPIDERMOLYSIS [None]
  - RENAL FAILURE ACUTE [None]
